FAERS Safety Report 8848385 (Version 1)
Quarter: 2012Q4

REPORT INFORMATION
  Report Type: 
  Country: BR (occurrence: BR)
  Receive Date: 20121018
  Receipt Date: 20121018
  Transmission Date: 20130627
  Serious: Yes (Hospitalization)
  Sender: FDA-Public Use
  Company Number: BR-ASTRAZENECA-2012SE77820

PATIENT
  Age: 22152 Day
  Sex: Male
  Weight: 90 kg

DRUGS (8)
  1. ATENOLOL [Suspect]
     Indication: HYPERTENSION
     Route: 048
     Dates: start: 2009
  2. ATENOLOL [Suspect]
     Indication: ARRHYTHMIA
     Route: 048
     Dates: start: 2009
  3. ATACAND [Suspect]
     Indication: HYPERTENSION
     Route: 048
     Dates: start: 2009, end: 201210
  4. ATACAND [Suspect]
     Indication: ARRHYTHMIA
     Route: 048
     Dates: start: 2009, end: 201210
  5. AMLODIPINE [Suspect]
     Indication: HYPERTENSION
     Route: 048
     Dates: start: 2009, end: 201210
  6. AMLODIPINE [Suspect]
     Indication: ARRHYTHMIA
     Route: 048
     Dates: start: 2009, end: 201210
  7. AMLODIPINE [Suspect]
     Indication: HYPERTENSION
     Route: 048
  8. AMLODIPINE [Suspect]
     Indication: ARRHYTHMIA
     Route: 048

REACTIONS (4)
  - Arrhythmia [Recovering/Resolving]
  - Oedema peripheral [Not Recovered/Not Resolved]
  - Drug ineffective [Unknown]
  - Blood pressure fluctuation [Recovered/Resolved]
